FAERS Safety Report 7692171-9 (Version None)
Quarter: 2011Q3

REPORT INFORMATION
  Report Type: 
  Country: None (occurrence: None)
  Receive Date: 20110818
  Receipt Date: 20110816
  Transmission Date: 20111222
  Serious: Yes (Other)
  Sender: FDA-Public Use
  Company Number: PHEH2011US01650

PATIENT
  Age: 73 Year
  Sex: Male

DRUGS (2)
  1. FUROSEMIDE [Concomitant]
     Dosage: 80 MG, BID
  2. VOLTAREN-XR [Suspect]
     Dosage: 100 MG, UNK
     Route: 048

REACTIONS (5)
  - CARDIAC DISCOMFORT [None]
  - RENAL FAILURE [None]
  - PULMONARY OEDEMA [None]
  - RENAL IMPAIRMENT [None]
  - DYSPNOEA [None]
